FAERS Safety Report 20644984 (Version 1)
Quarter: 2022Q1

REPORT INFORMATION
  Report Type: Spontaneous
  Country: TR (occurrence: TR)
  Receive Date: 20220328
  Receipt Date: 20220328
  Transmission Date: 20220424
  Serious: Yes (Other)
  Sender: FDA-Public Use
  Company Number: TR-AMNEAL PHARMACEUTICALS-2022-AMRX-00801

PATIENT

DRUGS (1)
  1. LEVETIRACETAM [Suspect]
     Active Substance: LEVETIRACETAM
     Indication: Suicide attempt
     Dosage: UNK
     Route: 065

REACTIONS (4)
  - Ventricular extrasystoles [Unknown]
  - Bradycardia [Unknown]
  - Suicide attempt [Unknown]
  - Intentional overdose [Unknown]
